FAERS Safety Report 7962731 (Version 7)
Quarter: 2013Q3

REPORT INFORMATION
  Report Type: Report from Study
  Country: DE (occurrence: DE)
  Receive Date: 20110526
  Receipt Date: 20130912
  Transmission Date: 20140515
  Serious: Yes (Death, Hospitalization, Other)
  Sender: FDA-Public Use
  Company Number: DE-UCBSA-024569

PATIENT
  Age: 71 Year
  Sex: Female
  Weight: 67 kg

DRUGS (24)
  1. CERTOLIZUMAB PEGOL [Suspect]
     Indication: RHEUMATOID ARTHRITIS
     Route: 058
     Dates: start: 20100920, end: 20101215
  2. PREDNISOLONE [Concomitant]
     Indication: RHEUMATOID ARTHRITIS
     Route: 048
     Dates: start: 20090906
  3. PREDNISOLONE [Concomitant]
     Indication: RESPIRATORY FAILURE
     Route: 048
     Dates: start: 20090906
  4. PREDNISOLONE [Concomitant]
     Indication: RHEUMATOID ARTHRITIS
     Dosage: DOSE: 100 -10 MG ONCE DAILY
     Dates: start: 201101, end: 201101
  5. PREDNISOLONE [Concomitant]
     Indication: RESPIRATORY FAILURE
     Dosage: DOSE: 100 -10 MG ONCE DAILY
     Dates: start: 201101, end: 201101
  6. ARAVA [Concomitant]
     Indication: RHEUMATOID ARTHRITIS
     Route: 048
     Dates: start: 200909, end: 20110202
  7. PREDNI HEXAL [Concomitant]
     Indication: RHEUMATOID ARTHRITIS
     Dates: start: 20091216, end: 20100302
  8. PREDNI HEXAL [Concomitant]
     Indication: RHEUMATOID ARTHRITIS
     Dosage: 1/2 ONCE IN THE MORNING
     Dates: start: 20100303, end: 20100526
  9. PREDNI HEXAL [Concomitant]
     Indication: RHEUMATOID ARTHRITIS
     Dosage: ONCE IN THE MORNING
     Dates: start: 20100527, end: 20100905
  10. PREDNI HEXAL [Concomitant]
     Indication: RHEUMATOID ARTHRITIS
     Dosage: 10 MG IN THE MORNING AND 5 MG IN THE EVENING
     Dates: start: 20100906, end: 20110201
  11. AMLODIPINE [Concomitant]
     Indication: HYPERTENSION
     Route: 048
     Dates: start: 201005, end: 20110202
  12. OMEPRAZOLE [Concomitant]
     Indication: PROPHYLAXIS AGAINST GASTROINTESTINAL ULCER
     Route: 048
     Dates: start: 200909, end: 20110202
  13. SIMVASTATIN [Concomitant]
     Indication: HYPERLIPIDAEMIA
     Dosage: 40 MG 1X1/2
     Route: 048
     Dates: start: 201005, end: 20110202
  14. MICARDIS [Concomitant]
     Indication: HYPERTENSION
     Route: 048
     Dates: start: 201005, end: 20110202
  15. CALCICARE D3 [Concomitant]
     Indication: OSTEOPOROSIS
     Dosage: 600/400 MG/IU
     Route: 048
     Dates: start: 200909, end: 20110202
  16. ALENDRONIC ACID [Concomitant]
     Indication: OSTEOPOROSIS
     Route: 048
     Dates: start: 20100906, end: 20110202
  17. ASS [Concomitant]
     Indication: ARTERIOSCLEROSIS
     Route: 048
     Dates: start: 2009, end: 20110202
  18. ARCOXIA [Concomitant]
     Indication: RHEUMATOID ARTHRITIS
     Dosage: FREQ.:BQ
     Route: 048
     Dates: start: 20100906, end: 20110202
  19. MERONEM [Concomitant]
     Indication: RESPIRATORY FAILURE
     Dates: start: 201101, end: 201101
  20. KLACID [Concomitant]
     Indication: RESPIRATORY FAILURE
     Dates: start: 201101, end: 201101
  21. TAZOBAC [Concomitant]
     Indication: RESPIRATORY FAILURE
     Dates: start: 201101, end: 201101
  22. AVALOX [Concomitant]
     Indication: SEPSIS
     Dates: start: 201101, end: 201101
  23. E 154-SOL. (ELECTROLYTE SOLUTION) [Concomitant]
     Indication: DEHYDRATION
     Dates: start: 201101, end: 201101
  24. CATECHOLAMINE [Concomitant]
     Indication: CARDIOVASCULAR DISORDER
     Dates: start: 201101, end: 201101

REACTIONS (5)
  - Cardiac failure [Fatal]
  - Sepsis [Fatal]
  - Ventricular fibrillation [Recovered/Resolved]
  - Dermatitis psoriasiform [Not Recovered/Not Resolved]
  - Gastrointestinal viral infection [Recovered/Resolved]
